FAERS Safety Report 15485855 (Version 1)
Quarter: 2018Q4

REPORT INFORMATION
  Report Type: Spontaneous
  Country: US (occurrence: US)
  Receive Date: 20181011
  Receipt Date: 20181011
  Transmission Date: 20190205
  Serious: No
  Sender: FDA-Public Use
  Company Number: US-JNJFOC-20180915089

PATIENT
  Age: 38 Year
  Sex: Female

DRUGS (3)
  1. TYLENOL 8HR [Suspect]
     Active Substance: ACETAMINOPHEN
     Route: 048
  2. TYLENOL 8HR [Suspect]
     Active Substance: ACETAMINOPHEN
     Indication: HEADACHE
     Route: 048
     Dates: start: 20180907, end: 20180909
  3. EXTRA STRENGTH TYLENOL PM BERRY [Concomitant]
     Indication: HEADACHE
     Route: 048
     Dates: start: 20180908, end: 20180908

REACTIONS (4)
  - Inappropriate schedule of product administration [Unknown]
  - Product administration error [Unknown]
  - Therapeutic response unexpected [Unknown]
  - Headache [Not Recovered/Not Resolved]

NARRATIVE: CASE EVENT DATE: 20180907
